FAERS Safety Report 12807575 (Version 2)
Quarter: 2016Q4

REPORT INFORMATION
  Report Type: Spontaneous
  Country: US (occurrence: US)
  Receive Date: 20161004
  Receipt Date: 20161227
  Transmission Date: 20170207
  Serious: Yes (Congenital Anomaly, Other)
  Sender: FDA-Public Use
  Company Number: PHEH2016US025376

PATIENT
  Sex: Female

DRUGS (1)
  1. ZOFRAN [Suspect]
     Active Substance: ONDANSETRON HYDROCHLORIDE
     Indication: FOETAL EXPOSURE DURING PREGNANCY
     Dosage: UNK
     Route: 064

REACTIONS (14)
  - Foetal exposure during pregnancy [Unknown]
  - Strabismus [Unknown]
  - Cerebral palsy [Unknown]
  - Congenital anomaly [Unknown]
  - Emotional distress [Unknown]
  - Pain [Unknown]
  - Hydrocephalus [Unknown]
  - Developmental delay [Unknown]
  - Injury [Unknown]
  - Ear infection [Unknown]
  - Schizencephaly [Unknown]
  - Apraxia [Unknown]
  - Hemiparesis [Recovering/Resolving]
  - Anxiety [Unknown]
